FAERS Safety Report 22169250 (Version 1)
Quarter: 2023Q2

REPORT INFORMATION
  Report Type: Spontaneous
  Country: US (occurrence: US)
  Receive Date: 20230404
  Receipt Date: 20230404
  Transmission Date: 20230721
  Serious: Yes (Hospitalization, Other)
  Sender: FDA-Public Use
  Company Number: US-SPECGX-T202300871

PATIENT
  Age: 30 Month
  Sex: Male

DRUGS (1)
  1. METHADONE [Suspect]
     Active Substance: METHADONE HYDROCHLORIDE
     Indication: Product used for unknown indication
     Dosage: UNK
     Route: 065

REACTIONS (13)
  - Acidosis [Recovering/Resolving]
  - Gait disturbance [Unknown]
  - Choking [Unknown]
  - Increased upper airway secretion [Unknown]
  - Respiratory depression [Recovering/Resolving]
  - Toxicity to various agents [Recovering/Resolving]
  - Coma [Recovered/Resolved]
  - Hypertension [Recovered/Resolved]
  - Accidental exposure to product by child [Unknown]
  - Tonsillar hypertrophy [Unknown]
  - Retching [Unknown]
  - Vomiting [Unknown]
  - Miosis [Unknown]
